FAERS Safety Report 11939058 (Version 2)
Quarter: 2016Q1

REPORT INFORMATION
  Report Type: Report from Study
  Country: US (occurrence: US)
  Receive Date: 20160122
  Receipt Date: 20160229
  Transmission Date: 20160526
  Serious: Yes (Hospitalization, Other)
  Sender: FDA-Public Use
  Company Number: US-JNJFOC-20160108701

PATIENT
  Age: 14 Year
  Sex: Male
  Weight: 47.63 kg

DRUGS (3)
  1. REMICADE [Suspect]
     Active Substance: INFLIXIMAB
     Indication: CROHN^S DISEASE
     Route: 042
     Dates: start: 20151214
  2. REMICADE [Suspect]
     Active Substance: INFLIXIMAB
     Indication: CROHN^S DISEASE
     Route: 042
     Dates: start: 201410, end: 201508
  3. REMICADE [Suspect]
     Active Substance: INFLIXIMAB
     Indication: CROHN^S DISEASE
     Dosage: 300 (UNITS UNSPECIFIED)
     Route: 042
     Dates: start: 2015, end: 2015

REACTIONS (6)
  - Constipation [Unknown]
  - Anaemia [Unknown]
  - Abnormal loss of weight [Recovering/Resolving]
  - Intussusception [Recovered/Resolved]
  - Eating disorder [Unknown]
  - Weight increased [Unknown]

NARRATIVE: CASE EVENT DATE: 2015
